FAERS Safety Report 24210742 (Version 3)
Quarter: 2024Q3

REPORT INFORMATION
  Report Type: Spontaneous
  Country: FR (occurrence: FR)
  Receive Date: 20240814
  Receipt Date: 20240930
  Transmission Date: 20241017
  Serious: Yes (Hospitalization, Other)
  Sender: SANDOZ
  Company Number: None

PATIENT
  Age: 23 Year
  Sex: Female
  Weight: 57 kg

DRUGS (8)
  1. ATARAX [Suspect]
     Active Substance: HYDROXYZINE HYDROCHLORIDE
     Indication: Intentional overdose
     Dosage: NP
     Route: 048
     Dates: start: 20240721, end: 20240721
  2. CODEINE [Suspect]
     Active Substance: CODEINE
     Indication: Product used for unknown indication
     Dosage: UNK
     Route: 065
  3. IBUPROFEN [Suspect]
     Active Substance: IBUPROFEN
     Indication: Intentional overdose
     Dosage: NP
     Route: 048
     Dates: start: 20240721, end: 20240721
  4. KETOPROFEN [Suspect]
     Active Substance: KETOPROFEN
     Indication: Intentional overdose
     Dosage: NP
     Route: 048
     Dates: start: 20240721, end: 20240721
  5. ACETAMINOPHEN [Suspect]
     Active Substance: ACETAMINOPHEN
     Indication: Intentional overdose
     Dosage: NP
     Route: 048
     Dates: start: 20240721, end: 20240721
  6. ACETAMINOPHEN\CODEINE PHOSPHATE [Suspect]
     Active Substance: ACETAMINOPHEN\CODEINE PHOSPHATE
     Indication: Intentional overdose
     Dosage: NP
     Route: 048
     Dates: start: 20240721, end: 20240721
  7. TRAMADOL [Suspect]
     Active Substance: TRAMADOL
     Indication: Intentional overdose
     Dosage: NP
     Route: 048
     Dates: start: 20240721, end: 20240721
  8. ZOLPIDEM [Suspect]
     Active Substance: ZOLPIDEM TARTRATE
     Indication: Intentional overdose
     Dosage: NP
     Route: 048
     Dates: start: 20240721, end: 20240721

REACTIONS (4)
  - Coma [Recovered/Resolved]
  - Metabolic acidosis [Recovered/Resolved]
  - Poisoning deliberate [Recovered/Resolved]
  - Intentional overdose [Recovered/Resolved]

NARRATIVE: CASE EVENT DATE: 20240721
